FAERS Safety Report 8862870 (Version 2)
Quarter: 2012Q4

REPORT INFORMATION
  Report Type: 
  Country: US (occurrence: US)
  Receive Date: 20121026
  Receipt Date: 20121127
  Transmission Date: 20130627
  Serious: Yes (Hospitalization, Other)
  Sender: FDA-Public Use
  Company Number: US-TEVA-366488USA

PATIENT
  Age: 54 Year
  Sex: Female

DRUGS (2)
  1. ESTRADIOL [Suspect]
     Indication: HORMONE REPLACEMENT THERAPY
     Dosage: 0.5mg/day
     Route: 065
  2. BISACODYL [Suspect]
     Indication: CONSTIPATION
     Dosage: 3 Tablets
     Route: 048

REACTIONS (1)
  - Colitis ischaemic [Recovered/Resolved]
